FAERS Safety Report 5291837-8 (Version None)
Quarter: 2007Q2

REPORT INFORMATION
  Report Type: 
  Country: None (occurrence: None)
  Receive Date: 20070403
  Receipt Date: 20070322
  Transmission Date: 20071010
  Serious: Yes (Death, Hospitalization)
  Sender: FDA-Public Use
  Company Number: 237022

PATIENT
  Age: 47 Year
  Sex: Female

DRUGS (2)
  1. RITUXAN [Suspect]
     Indication: NON-HODGKIN'S LYMPHOMA
     Dosage: 375 MG/M2, INTRAVENOUS
     Route: 042
     Dates: start: 20020304, end: 20020726
  2. FLUDARABINE PHOSPHATE [Suspect]
     Indication: NON-HODGKIN'S LYMPHOMA
     Dosage: 25 MG/M2, INTRAVENOUS
     Route: 042
     Dates: start: 20020304, end: 20020726

REACTIONS (16)
  - ALANINE AMINOTRANSFERASE INCREASED [None]
  - ASPARTATE AMINOTRANSFERASE INCREASED [None]
  - CEREBRAL ISCHAEMIA [None]
  - COMA [None]
  - DYSARTHRIA [None]
  - ENCEPHALITIS [None]
  - ENCEPHALITIS HERPES [None]
  - FALSE NEGATIVE LABORATORY RESULT [None]
  - GLIOSIS [None]
  - MUSCULAR WEAKNESS [None]
  - PANCYTOPENIA [None]
  - PARALYSIS FLACCID [None]
  - PROTEIN TOTAL ABNORMAL [None]
  - RED BLOOD CELLS CSF POSITIVE [None]
  - VIRUS SEROLOGY TEST NEGATIVE [None]
  - WEST NILE VIRAL INFECTION [None]
